FAERS Safety Report 13874144 (Version 1)
Quarter: 2017Q3

REPORT INFORMATION
  Report Type: Spontaneous
  Country: US (occurrence: US)
  Receive Date: 20170816
  Receipt Date: 20170816
  Transmission Date: 20171127
  Serious: No
  Sender: FDA-Public Use
  Company Number: US-BAYER-2017-150100

PATIENT
  Sex: Male

DRUGS (1)
  1. STAXYN [Suspect]
     Active Substance: VARDENAFIL HYDROCHLORIDE TRIHYDRATE
     Indication: ERECTILE DYSFUNCTION
     Dosage: 10 MG, ONCE
     Route: 048
     Dates: start: 20170803

REACTIONS (2)
  - Drug ineffective [None]
  - Diarrhoea [None]

NARRATIVE: CASE EVENT DATE: 20170803
